FAERS Safety Report 6745998-1 (Version None)
Quarter: 2010Q2

REPORT INFORMATION
  Report Type: 
  Country: None (occurrence: None)
  Receive Date: 20100528
  Receipt Date: 20100521
  Transmission Date: 20101027
  Serious: Yes (Other)
  Sender: FDA-Public Use
  Company Number: CA-PFIZER INC-2010064260

PATIENT
  Age: 45 Year
  Sex: Female

DRUGS (3)
  1. ZELDOX [Suspect]
     Dosage: UNK
  2. EPIVAL [Concomitant]
     Dosage: UNK
  3. ZYPREXA [Concomitant]
     Dosage: UNK

REACTIONS (1)
  - RENAL IMPAIRMENT [None]
